FAERS Safety Report 8250087-3 (Version None)
Quarter: 2012Q1

REPORT INFORMATION
  Report Type: 
  Country: None (occurrence: None)
  Receive Date: 20120319
  Receipt Date: 20091014
  Transmission Date: 20120608
  Serious: Yes (Other)
  Sender: FDA-Public Use
  Company Number: PHEH2009US13732

PATIENT
  Age: 52 Year

DRUGS (1)
  1. TEKTURNA HCT [Suspect]
     Dosage: ALIS 150/HCT12.5MG

REACTIONS (1)
  - BLOOD PRESSURE DIASTOLIC INCREASED [None]
